FAERS Safety Report 6617668-1 (Version None)
Quarter: 2010Q1

REPORT INFORMATION
  Report Type: 
  Country: None (occurrence: None)
  Receive Date: 20100308
  Receipt Date: 20100223
  Transmission Date: 20100710
  Serious: Yes (Hospitalization)
  Sender: FDA-Public Use
  Company Number: 2007BI020588

PATIENT
  Age: 34 Year
  Sex: Female
  Weight: 65 kg

DRUGS (1)
  1. AVONEX [Suspect]
     Indication: MULTIPLE SCLEROSIS
     Route: 030
     Dates: start: 20040326

REACTIONS (3)
  - MEMORY IMPAIRMENT [None]
  - MUSCLE SPASMS [None]
  - NEURILEMMOMA BENIGN [None]
